FAERS Safety Report 8303621-9 (Version None)
Quarter: 2012Q2

REPORT INFORMATION
  Report Type: 
  Country: None (occurrence: None)
  Receive Date: 20120418
  Receipt Date: 20120411
  Transmission Date: 20120825
  Serious: Yes (Hospitalization)
  Sender: FDA-Public Use
  Company Number: 2012SP016936

PATIENT
  Sex: Female
  Weight: 71.5 kg

DRUGS (5)
  1. PANTOPRAZOLE [Concomitant]
  2. FLUOXETINE [Concomitant]
  3. TEMODAL [Suspect]
     Indication: GLIOMA
     Dosage: UNK;PO
     Route: 048
     Dates: start: 20111201, end: 20120310
  4. CARBAMAZEPINE [Concomitant]
  5. VALPROATE SODIUM [Concomitant]

REACTIONS (5)
  - PLEURAL EFFUSION [None]
  - PNEUMOCYSTIS JIROVECI PNEUMONIA [None]
  - PNEUMONITIS [None]
  - LOWER RESPIRATORY TRACT INFECTION [None]
  - HEPATITIS ACUTE [None]
